FAERS Safety Report 4308887-8 (Version None)
Quarter: 2004Q1

REPORT INFORMATION
  Report Type: 
  Country: None (occurrence: None)
  Receive Date: 20040302
  Receipt Date: 20040202
  Transmission Date: 20041129
  Serious: Yes (Death, Hospitalization)
  Sender: FDA-Public Use
  Company Number: PHHO2004BE01702

PATIENT
  Age: 55 Year
  Sex: Female
  Weight: 80 kg

DRUGS (3)
  1. ERL080 [Suspect]
     Indication: RENAL TRANSPLANT
     Dosage: 360 MG, BID
     Route: 048
     Dates: start: 20030216
  2. NEORAL [Suspect]
     Indication: RENAL TRANSPLANT
     Dosage: NOT REPORTED
     Route: 048
  3. PREDNISONE [Suspect]
     Indication: RENAL TRANSPLANT
     Dosage: NOT REPORTED
     Route: 048

REACTIONS (7)
  - CARDIAC ARREST [None]
  - CEREBRAL DISORDER [None]
  - ENTEROCOCCAL INFECTION [None]
  - HYPOXIA [None]
  - LEUKOPENIA [None]
  - PNEUMONIA [None]
  - RESPIRATORY FAILURE [None]
